FAERS Safety Report 4917578-1 (Version None)
Quarter: 2006Q1

REPORT INFORMATION
  Report Type: 
  Country: None (occurrence: None)
  Receive Date: 20060221
  Receipt Date: 20050406
  Transmission Date: 20060701
  Serious: Yes (Hospitalization)
  Sender: FDA-Public Use
  Company Number: PHHO2005TW05598

PATIENT
  Age: 61 Year
  Sex: Male
  Weight: 63.5 kg

DRUGS (7)
  1. EXELON [Suspect]
     Indication: DEMENTIA ALZHEIMER'S TYPE
     Dosage: DOSE LEVEL 4
     Route: 062
     Dates: start: 20050323, end: 20050402
  2. AMLODIPINE [Concomitant]
     Indication: HYPERTENSION
  3. ALLOPURINOL [Concomitant]
     Indication: GOUT
  4. LISINOPRIL [Concomitant]
     Indication: HYPERTENSION
  5. DISOTHIAZIDE [Concomitant]
     Indication: HYPERTENSION
  6. TICLOPIDINE HCL [Concomitant]
     Indication: CEREBRAL INFARCTION
  7. MAGNESIUM OXIDE [Concomitant]
     Indication: GASTROINTESTINAL DISORDER

REACTIONS (4)
  - ABDOMINAL PAIN [None]
  - LIPASE INCREASED [None]
  - NAUSEA [None]
  - VOMITING [None]
